FAERS Safety Report 9523610 (Version 1)
Quarter: 2013Q3

REPORT INFORMATION
  Report Type: Spontaneous
  Country: US (occurrence: US)
  Receive Date: 20130913
  Receipt Date: 20130913
  Transmission Date: 20140515
  Serious: Yes (Hospitalization)
  Sender: FDA-Public Use
  Company Number: US-B.I. PHARMACEUTICALS,INC./RIDGEFIELD-2013-BI-28263BP

PATIENT
  Age: 60 Year
  Sex: Male
  Weight: 73 kg

DRUGS (9)
  1. SPIRIVA [Suspect]
     Indication: CHRONIC OBSTRUCTIVE PULMONARY DISEASE
     Dosage: 18 MCG
     Route: 055
     Dates: start: 2011
  2. VITAMIN B12 [Concomitant]
     Indication: ASTHENIA
     Dosage: 5000 MG
     Route: 048
     Dates: start: 201308
  3. VITAMIN C [Concomitant]
     Dosage: 500 MG
     Route: 048
     Dates: start: 201308
  4. CENTRUM SILVER [Concomitant]
     Dosage: 1 ANZ
     Route: 048
     Dates: start: 2011
  5. TAMSULOSIN [Concomitant]
     Indication: POLLAKIURIA
     Dosage: 0.4 MG
     Route: 048
     Dates: start: 2012
  6. IBUPROFEN [Concomitant]
     Indication: BURSITIS
     Dosage: 600 MG
     Route: 048
     Dates: start: 2012
  7. VICODIN [Concomitant]
     Indication: BURSITIS
     Dosage: STRENGTH: 7.5 MG / 325 MG; DAILY DOSE: 7.5 MG / 325 MG
     Route: 048
     Dates: start: 2012
  8. VICODIN [Concomitant]
     Indication: BACK PAIN
  9. JALYN [Concomitant]
     Indication: POLLAKIURIA
     Dosage: STRENGTH: 0.5 MG / 0.4 MG; DAILY DOSE: 0.5 MG / 0.4 MG
     Route: 048
     Dates: start: 201302

REACTIONS (3)
  - Oesophageal carcinoma [Recovered/Resolved]
  - Abnormal loss of weight [Not Recovered/Not Resolved]
  - Throat tightness [Recovered/Resolved]
